FAERS Safety Report 9353950 (Version 1)
Quarter: 2013Q2

REPORT INFORMATION
  Report Type: Spontaneous
  Country: US (occurrence: US)
  Receive Date: 20130618
  Receipt Date: 20130618
  Transmission Date: 20140414
  Serious: Yes (Hospitalization)
  Sender: FDA-Public Use
  Company Number: US-BAYER-2013-073307

PATIENT
  Age: 34 Year
  Sex: Female
  Weight: 86.17 kg

DRUGS (2)
  1. YASMIN [Suspect]
  2. OCELLA [Suspect]

REACTIONS (13)
  - Pulmonary embolism [None]
  - Transient ischaemic attack [None]
  - Dyspnoea [None]
  - Hypoaesthesia [None]
  - Pain [None]
  - Nausea [None]
  - Sensation of heaviness [None]
  - Fatigue [None]
  - Chest discomfort [None]
  - Confusional state [None]
  - Lethargy [None]
  - Speech disorder [None]
  - Chest pain [None]
